FAERS Safety Report 8572962-2 (Version None)
Quarter: 2012Q2

REPORT INFORMATION
  Report Type: 
  Country: None (occurrence: None)
  Receive Date: 20120420
  Receipt Date: 20120420
  Transmission Date: 20120825
  Serious: Yes (Other)
  Sender: FDA-Public Use
  Company Number: ALL1-2012-00865

PATIENT
  Age: 34 Year
  Sex: Male
  Weight: 65.8 kg

DRUGS (3)
  1. LISINOPRIL [Concomitant]
  2. VYVANSE [Suspect]
     Indication: ATTENTION DEFICIT/HYPERACTIVITY DISORDER
     Dosage: 50 MG, 1X/DAY:QD, ORAL 60 MG, 1X/DAY:QD, ORAL
     Route: 048
     Dates: start: 20100101, end: 20110101
  3. VYVANSE [Suspect]
     Indication: ATTENTION DEFICIT/HYPERACTIVITY DISORDER
     Dosage: 50 MG, 1X/DAY:QD, ORAL 60 MG, 1X/DAY:QD, ORAL
     Route: 048
     Dates: start: 20110101

REACTIONS (4)
  - CONFUSIONAL STATE [None]
  - ANXIETY [None]
  - DEPRESSION [None]
  - BLOOD PRESSURE INCREASED [None]
